FAERS Safety Report 9075929 (Version 1)
Quarter: 2013Q1

REPORT INFORMATION
  Report Type: Spontaneous
  Country: US (occurrence: US)
  Receive Date: 20130129
  Receipt Date: 20130129
  Transmission Date: 20140127
  Serious: Yes (Hospitalization, Other)
  Sender: FDA-Public Use
  Company Number: US-009507513-1301USA012630

PATIENT
  Sex: Male

DRUGS (2)
  1. SINGULAIR [Suspect]
     Dosage: UNK
  2. ACETAMINOPHEN (+) ASPIRIN (+) CAFFEINE [Concomitant]

REACTIONS (1)
  - Suicide attempt [Unknown]
